FAERS Safety Report 7656527-2 (Version None)
Quarter: 2011Q3

REPORT INFORMATION
  Report Type: 
  Country: None (occurrence: None)
  Receive Date: 20110804
  Receipt Date: 20101019
  Transmission Date: 20111222
  Serious: No
  Sender: FDA-Public Use
  Company Number: US-BAUSCH-2010BL005938

PATIENT
  Age: 19 Year
  Sex: Male

DRUGS (2)
  1. CLARITIN /USA/ [Concomitant]
     Indication: HYPERSENSITIVITY
  2. OPCON-A [Suspect]
     Indication: EYE PRURITUS
     Route: 047
     Dates: start: 20100801

REACTIONS (1)
  - DYSPNOEA [None]
